FAERS Safety Report 7971018-7 (Version None)
Quarter: 2011Q4

REPORT INFORMATION
  Report Type: 
  Country: None (occurrence: None)
  Receive Date: 20111212
  Receipt Date: 20111201
  Transmission Date: 20120403
  Serious: Yes (Hospitalization)
  Sender: FDA-Public Use
  Company Number: CN-ASTRAZENECA-2011SE73379

PATIENT
  Age: 29306 Day
  Sex: Male
  Weight: 60 kg

DRUGS (6)
  1. LUOBUMA [Concomitant]
     Indication: HYPERTENSION
     Dosage: DAILY
     Route: 048
  2. VENTOLIN [Concomitant]
     Indication: CHRONIC OBSTRUCTIVE PULMONARY DISEASE
     Dosage: 0.1MG/DOSE AS REQUIRED
     Route: 055
     Dates: start: 20111017, end: 20111130
  3. SYMBICORT [Suspect]
     Indication: CHRONIC OBSTRUCTIVE PULMONARY DISEASE
     Dosage: 2 INHALATIONS DAILY
     Route: 055
     Dates: end: 20111017
  4. SYMBICORT [Suspect]
     Dosage: 160/4.5 UG/INHALATION, 2 INHALATIONS TWO TIMES A DAY
     Route: 055
     Dates: start: 20111107, end: 20111130
  5. THEOPHYLLINE-SR [Suspect]
     Indication: CHRONIC OBSTRUCTIVE PULMONARY DISEASE
     Route: 048
     Dates: end: 20111130
  6. ATROVENT [Suspect]
     Indication: CHRONIC OBSTRUCTIVE PULMONARY DISEASE
     Dosage: 20 UG/INHALATION, 2 INHALATIONS FOUR TIMES A DAY
     Route: 055
     Dates: start: 20111017, end: 20111130

REACTIONS (1)
  - CHRONIC OBSTRUCTIVE PULMONARY DISEASE [None]
